FAERS Safety Report 14291333 (Version 2)
Quarter: 2017Q4

REPORT INFORMATION
  Report Type: Report from Study
  Country: None (occurrence: DE)
  Receive Date: 20171215
  Receipt Date: 20171225
  Transmission Date: 20180321
  Serious: Yes (Hospitalization, Other)
  Sender: FDA-Public Use
  Company Number: DE-ABBVIE-17S-062-2188056-00

PATIENT
  Age: 54 Year
  Sex: Female
  Weight: 65 kg

DRUGS (3)
  1. VIEKIRAX [Suspect]
     Active Substance: OMBITASVIR\PARITAPREVIR\RITONAVIR
     Indication: CHRONIC HEPATITIS C
     Route: 048
     Dates: start: 20170327, end: 20170521
  2. EXVIERA [Suspect]
     Active Substance: DASABUVIR
     Indication: CHRONIC HEPATITIS C
     Route: 048
     Dates: start: 20170327, end: 20170521
  3. XELJANZ [Concomitant]
     Active Substance: TOFACITINIB CITRATE
     Indication: PRODUCT USED FOR UNKNOWN INDICATION
     Dates: start: 20171113

REACTIONS (13)
  - Myelitis transverse [Unknown]
  - Gait disturbance [Unknown]
  - Myelitis [Unknown]
  - Hepatitis C [Unknown]
  - Muscular weakness [Unknown]
  - Decreased vibratory sense [Unknown]
  - Hepatitis B [Unknown]
  - Sjogren^s syndrome [Not Recovered/Not Resolved]
  - Nervous system disorder [Unknown]
  - Clinically isolated syndrome [Unknown]
  - Gait disturbance [Unknown]
  - Optic nerve injury [Unknown]
  - Peripheral sensory neuropathy [Unknown]

NARRATIVE: CASE EVENT DATE: 2017
